FAERS Safety Report 7279754-5 (Version None)
Quarter: 2011Q1

REPORT INFORMATION
  Report Type: 
  Country: None (occurrence: None)
  Receive Date: 20110203
  Receipt Date: 20110203
  Transmission Date: 20110831
  Serious: Yes (Hospitalization)
  Sender: FDA-Public Use
  Company Number: None

PATIENT
  Age: 60 Year
  Sex: Male

DRUGS (2)
  1. BORTEZOMIB [Suspect]
     Dosage: 2.34 MG IV
     Route: 042
     Dates: start: 20100121
  2. DOXORUBICIN [Suspect]
     Dosage: 54 MG ONCE IV
     Route: 042
     Dates: start: 20100121

REACTIONS (7)
  - EPISTAXIS [None]
  - ANAEMIA [None]
  - LEUKOPENIA [None]
  - COUGH [None]
  - SINUS CONGESTION [None]
  - PYREXIA [None]
  - CHILLS [None]
